FAERS Safety Report 24765382 (Version 1)
Quarter: 2024Q4

REPORT INFORMATION
  Report Type: Spontaneous
  Country: US (occurrence: US)
  Receive Date: 20241223
  Receipt Date: 20241223
  Transmission Date: 20250115
  Serious: No
  Sender: Haleon PLC
  Company Number: US-HALEON-2217537

PATIENT
  Age: 81 Year
  Sex: Female

DRUGS (1)
  1. ROBITUSSIN NIGHTTIME COUGH DM SOFT CHEWS [Suspect]
     Active Substance: DEXTROMETHORPHAN HYDROBROMIDE\DOXYLAMINE SUCCINATE
     Indication: Cough
     Dosage: EXPDATE:20250831
     Dates: start: 20241218

REACTIONS (4)
  - Retching [Unknown]
  - Hypersomnia [Recovered/Resolved]
  - Incorrect dose administered [Unknown]
  - Somnolence [Unknown]

NARRATIVE: CASE EVENT DATE: 20241218
